FAERS Safety Report 10654302 (Version 1)
Quarter: 2014Q4

REPORT INFORMATION
  Report Type: Spontaneous
  Country: US (occurrence: None)
  Receive Date: 20141215
  Receipt Date: 20141215
  Transmission Date: 20150529
  Serious: Yes (Disabling)
  Sender: FDA-Public Use
  Company Number: None

PATIENT
  Age: 38 Year
  Sex: Male
  Weight: 77.11 kg

DRUGS (2)
  1. TECFIDERA [Suspect]
     Active Substance: DIMETHYL FUMARATE
     Indication: DRUG EFFECT DECREASED
     Dosage: 2 PILLS?TWICE DAILY?TAKEN BY MOUTH
     Route: 048
  2. TECFIDERA [Suspect]
     Active Substance: DIMETHYL FUMARATE
     Indication: PRODUCT USED FOR UNKNOWN INDICATION
     Dosage: 2 PILLS?TWICE DAILY?TAKEN BY MOUTH
     Route: 048

REACTIONS (2)
  - Balanitis candida [None]
  - Pruritus [None]

NARRATIVE: CASE EVENT DATE: 20140901
